FAERS Safety Report 9063532 (Version 1)
Quarter: 2013Q1

REPORT INFORMATION
  Report Type: Report from Study
  Country: US (occurrence: US)
  Receive Date: 20130129
  Receipt Date: 20130129
  Transmission Date: 20140127
  Serious: No
  Sender: FDA-Public Use
  Company Number: US-ABBOTT-12P-163-0950235-00

PATIENT
  Age: 42 Year
  Sex: Male

DRUGS (2)
  1. HUMIRA 40 MG/0.8 ML PEN [Suspect]
     Indication: PSORIASIS
     Dates: start: 2004
  2. UNSPECIFIED PAIN MEDICATIONS [Concomitant]
     Indication: PAIN

REACTIONS (6)
  - Feeling abnormal [Not Recovered/Not Resolved]
  - Erythema [None]
  - Local swelling [None]
  - Pain [None]
  - Muscle twitching [None]
  - Muscle spasms [None]
